FAERS Safety Report 4918239-5 (Version None)
Quarter: 2006Q1

REPORT INFORMATION
  Report Type: 
  Country: None (occurrence: None)
  Receive Date: 20060215
  Receipt Date: 20060204
  Transmission Date: 20060701
  Serious: Yes (Other)
  Sender: FDA-Public Use
  Company Number: 200610571BCC

PATIENT
  Sex: Male

DRUGS (1)
  1. ALEVE [Suspect]
     Dosage: ORAL
     Route: 048

REACTIONS (6)
  - CHEST DISCOMFORT [None]
  - DIZZINESS [None]
  - FAECAL INCONTINENCE [None]
  - HYPERHIDROSIS [None]
  - LOSS OF CONSCIOUSNESS [None]
  - PARAESTHESIA [None]
